FAERS Safety Report 5047687-0 (Version None)
Quarter: 2006Q3

REPORT INFORMATION
  Report Type: 
  Country: None (occurrence: None)
  Receive Date: 20060706
  Receipt Date: 20060706
  Transmission Date: 20061208
  Serious: No
  Sender: FDA-Public Use
  Company Number: None

PATIENT
  Sex: Female
  Weight: 54.4316 kg

DRUGS (4)
  1. ERBITUX [Suspect]
     Indication: NEOPLASM MALIGNANT
     Dosage: 392.5 MG   WEEKLY  IV
     Route: 042
     Dates: start: 20060412, end: 20060626
  2. PACLITAXEL [Suspect]
     Indication: NEOPLASM MALIGNANT
     Dosage: 62.8 MG   WEEKLY   IV
     Route: 042
     Dates: start: 20060515, end: 20060626
  3. CARBOPLATIN [Suspect]
     Indication: NEOPLASM MALIGNANT
     Dosage: 127MG   WEEKLY  IV
     Route: 042
     Dates: start: 20060515, end: 20060626
  4. RADIATION  7500CGY + 5 WEEKS/ 2100-2700CGY WEEKS 6-8 [Suspect]
     Indication: NEOPLASM MALIGNANT
     Dosage: 5 DAYS A WEEK
     Dates: start: 20060515, end: 20060630

REACTIONS (15)
  - DERMATITIS [None]
  - ERYTHEMA [None]
  - GLOSSODYNIA [None]
  - HAEMORRHAGE [None]
  - MOUTH ULCERATION [None]
  - MUCOSAL INFLAMMATION [None]
  - NECROSIS [None]
  - ORAL PAIN [None]
  - PURPURA [None]
  - RADIATION SKIN INJURY [None]
  - RASH [None]
  - SKIN EXFOLIATION [None]
  - STOMATITIS [None]
  - TONGUE DISORDER [None]
  - TONGUE ULCERATION [None]
